FAERS Safety Report 4515201-1 (Version None)
Quarter: 2004Q4

REPORT INFORMATION
  Report Type: 
  Country: None (occurrence: None)
  Receive Date: 20041126
  Receipt Date: 20041111
  Transmission Date: 20050328
  Serious: Yes (Hospitalization, Other)
  Sender: FDA-Public Use
  Company Number: 2004084798

PATIENT
  Age: 39 Year
  Sex: Male
  Weight: 59.4 kg

DRUGS (9)
  1. ATARAX [Suspect]
     Indication: PRURITUS
     Dosage: 25 MG (25 MG, 1 IN 1D), ORAL
     Route: 048
     Dates: start: 20040229, end: 20040304
  2. SOLU-MEDROL [Suspect]
     Indication: RASH
     Dosage: 250 MG (250 MG, 1 IN 1 D), INTRAVENOUS
     Route: 042
     Dates: start: 20040228, end: 20040228
  3. ZOVIRAX [Suspect]
     Indication: ILL-DEFINED DISORDER
     Dosage: 500 MG (250 MG, 2 IN 1 D), INTRAVENOUS
     Route: 042
     Dates: start: 20040227, end: 20040303
  4. OXATOMIDE [Suspect]
     Indication: PRURITUS
     Dosage: 60 MG (30 MG, 2 IN 1 D), ORAL
     Route: 048
     Dates: start: 20040227, end: 20040311
  5. ACETAMINOPHEN [Suspect]
     Indication: PYREXIA
     Dosage: 1200 MG (400 MG, 3 IN 1 D), ORAL
     Route: 048
     Dates: start: 20040227, end: 20040301
  6. SOLITA-T3 INJECTION (POTASSIUM CHLORIDE, SODIUM CHLORIDE, SODIUM LACTA [Suspect]
     Indication: FLUID REPLACEMENT
     Dosage: 500 ML (500 ML 1 IN 1 D), INTRAVENOUS
     Route: 042
     Dates: start: 20040227, end: 20040302
  7. STRONG NEO-MINOPHAGEN C (AMINOACETIC ACID, CYSTEINE, GLYCYRRHIZIC ACID [Suspect]
     Indication: PRURITUS
     Dosage: 20 ML (1 IN 1 D), INTRAVENOUS
     Route: 042
     Dates: start: 20040227, end: 20040301
  8. DICLOFENAC SODIUM [Suspect]
     Indication: ILL-DEFINED DISORDER
     Dosage: 50 MG (1 IN 1 D), RECTAL
     Route: 054
     Dates: start: 20040227, end: 20040227
  9. CHLORPHENAMINE MALEATE (CHLORPHENAMINE MALEATE) [Suspect]
     Indication: ILL-DEFINED DISORDER
     Dosage: 1 ML (1 IN 1 D), INTRAVENOUS
     Route: 042
     Dates: start: 20040227, end: 20040301

REACTIONS (4)
  - EOSINOPHIL COUNT INCREASED [None]
  - HEPATIC STEATOSIS [None]
  - MALAISE [None]
  - PYREXIA [None]
